FAERS Safety Report 9537637 (Version 1)
Quarter: 2013Q3

REPORT INFORMATION
  Report Type: Report from Study
  Country: US (occurrence: US)
  Receive Date: 20130919
  Receipt Date: 20130919
  Transmission Date: 20140515
  Serious: Yes (Other)
  Sender: FDA-Public Use
  Company Number: US-BAXTER-2013BAX036782

PATIENT
  Sex: 0

DRUGS (7)
  1. IFOSFAMIDE FOR INJECTION [Suspect]
     Indication: SARCOMA METASTATIC
     Dosage: 2.5 G/M2 (DAYS 1 TO 4)
     Route: 042
  2. MESNA FOR INJECTION 1 GRAM [Suspect]
     Indication: PRODUCT USED FOR UNKNOWN INDICATION
     Dosage: AS PER CURRENT STANDARD OF CARE
     Route: 065
  3. DOXORUBICIN [Suspect]
     Indication: SARCOMA METASTATIC
     Dosage: DAY 1
     Route: 040
  4. DOXORUBICIN [Suspect]
     Dosage: DAYS 1 TO 3
     Route: 040
  5. DEXRAZOXANE [Suspect]
     Indication: PRODUCT USED FOR UNKNOWN INDICATION
     Dosage: AS PER CURRENT STANDARD OF CARE
     Route: 065
  6. ELTROMBOPAG [Suspect]
     Indication: SARCOMA METASTATIC
  7. ESTROGEN [Concomitant]
     Indication: PRODUCT USED FOR UNKNOWN INDICATION
     Route: 065

REACTIONS (1)
  - Subclavian vein thrombosis [Recovered/Resolved]
